FAERS Safety Report 8152652-0 (Version None)
Quarter: 2012Q1

REPORT INFORMATION
  Report Type: 
  Country: None (occurrence: None)
  Receive Date: 20120103
  Receipt Date: 20111107
  Transmission Date: 20120608
  Serious: No
  Sender: FDA-Public Use
  Company Number: AE-2011-001812

PATIENT
  Age: 55 Year
  Sex: Female
  Weight: 136.0791 kg

DRUGS (3)
  1. PEGASYS [Concomitant]
  2. INCIVEK [Suspect]
     Dosage: 2250 MILLICURIES (750 MILLICURIES,1 IN 8 HR),ORAL
     Route: 048
     Dates: start: 20110802
  3. RIBAVIRIN [Concomitant]

REACTIONS (3)
  - DRY SKIN [None]
  - PRURITUS [None]
  - FEELING COLD [None]
